FAERS Safety Report 12728131 (Version 1)
Quarter: 2016Q3

REPORT INFORMATION
  Report Type: Other
  Country: JP (occurrence: JP)
  Receive Date: 20160909
  Receipt Date: 20160909
  Transmission Date: 20161109
  Serious: Yes (Other)
  Sender: FDA-Public Use
  Company Number: JP-HIKMA PHARMACEUTICALS CO. LTD-2016JP008532

PATIENT

DRUGS (3)
  1. INFLIXIMAB BS FOR I.V. INFUSION100 (CTH) [Suspect]
     Active Substance: INFLIXIMAB
     Dosage: UNK
     Route: 042
     Dates: start: 20160304, end: 20160304
  2. INFLIXIMAB BS FOR I.V. INFUSION100 (CTH) [Suspect]
     Active Substance: INFLIXIMAB
     Dosage: UNK
     Route: 042
  3. INFLIXIMAB BS FOR I.V. INFUSION100 (CTH) [Suspect]
     Active Substance: INFLIXIMAB
     Indication: CROHN^S DISEASE
     Dosage: UNK
     Route: 042
     Dates: start: 20160130, end: 20160130

REACTIONS (1)
  - Platelet count increased [Recovering/Resolving]

NARRATIVE: CASE EVENT DATE: 20160304
